FAERS Safety Report 7721375-1 (Version None)
Quarter: 2011Q3

REPORT INFORMATION
  Report Type: 
  Country: None (occurrence: None)
  Receive Date: 20110831
  Receipt Date: 20110829
  Transmission Date: 20111222
  Serious: Yes (Death, Hospitalization)
  Sender: FDA-Public Use
  Company Number: JP-AMGEN-JPNCT2011044521

PATIENT
  Age: 74 Year
  Sex: Female

DRUGS (3)
  1. IRINOTECAN HCL [Concomitant]
     Indication: COLORECTAL CANCER
     Dosage: UNK
     Route: 041
     Dates: start: 20110428
  2. TS 1 [Concomitant]
     Indication: COLORECTAL CANCER
     Dosage: UNK
     Route: 048
     Dates: start: 20110428
  3. PANITUMUMAB [Suspect]
     Indication: COLORECTAL CANCER
     Dosage: UNK, Q2WK
     Route: 041
     Dates: start: 20110428

REACTIONS (4)
  - COLORECTAL CANCER [None]
  - JAUNDICE [None]
  - DIARRHOEA [None]
  - STOMATITIS [None]
